FAERS Safety Report 8713068 (Version 3)
Quarter: 2013Q1

REPORT INFORMATION
  Report Type: Spontaneous
  Country: US (occurrence: US)
  Receive Date: 20120808
  Receipt Date: 20130116
  Transmission Date: 20140127
  Serious: No
  Sender: FDA-Public Use
  Company Number: US-ASTRAZENECA-2012SE52099

PATIENT
  Age: 70 Year
  Sex: Male
  Weight: 74.8 kg

DRUGS (4)
  1. SEROQUEL XR [Suspect]
     Indication: BIPOLAR DISORDER
     Route: 048
  2. SEROQUEL XR [Suspect]
     Indication: BIPOLAR DISORDER
     Route: 048
  3. BLOOD THINNER [Concomitant]
  4. CHOLESTEROL MEDICATION [Concomitant]

REACTIONS (9)
  - Insomnia [Unknown]
  - Malaise [Unknown]
  - Panic attack [Unknown]
  - Sleep disorder [Unknown]
  - Adverse drug reaction [Unknown]
  - Anxiety [Unknown]
  - Activities of daily living impaired [Unknown]
  - Emphysema [Unknown]
  - Drug dose omission [Unknown]
